FAERS Safety Report 7795603-0 (Version None)
Quarter: 2011Q4

REPORT INFORMATION
  Report Type: 
  Country: None (occurrence: None)
  Receive Date: 20111004
  Receipt Date: 20111003
  Transmission Date: 20120403
  Serious: Yes (Other)
  Sender: FDA-Public Use
  Company Number: US-GLAXOSMITHKLINE-A0938559A

PATIENT
  Age: 40 Year
  Sex: Female

DRUGS (3)
  1. UNKNOWN [Concomitant]
  2. SUMATRIPTAN SUCCINATE [Suspect]
     Indication: MIGRAINE
     Route: 058
     Dates: start: 20101101
  3. GSK AUTOINJECTOR [Suspect]
     Indication: MIGRAINE
     Route: 058
     Dates: start: 20101101

REACTIONS (6)
  - PARALYSIS [None]
  - APPLICATION SITE ERYTHEMA [None]
  - APPLICATION SITE PRURITUS [None]
  - INFLAMMATION [None]
  - CONDITION AGGRAVATED [None]
  - APPLICATION SITE SWELLING [None]
